FAERS Safety Report 5120740-9 (Version None)
Quarter: 2006Q4

REPORT INFORMATION
  Report Type: 
  Country: None (occurrence: None)
  Receive Date: 20061003
  Receipt Date: 20061003
  Transmission Date: 20070319
  Serious: Yes (Other)
  Sender: FDA-Public Use
  Company Number: None

PATIENT
  Sex: Male
  Weight: 39 kg

DRUGS (1)
  1. GENGRAF [Suspect]
     Indication: HEART TRANSPLANT

REACTIONS (1)
  - DRUG LEVEL CHANGED [None]
